FAERS Safety Report 8817370 (Version 2)
Quarter: 2012Q4

REPORT INFORMATION
  Report Type: Report from Study
  Country: US (occurrence: US)
  Receive Date: 20121001
  Receipt Date: 20121015
  Transmission Date: 20130627
  Serious: Yes (Death, Other)
  Sender: FDA-Public Use
  Company Number: US-ASTELLAS-2012US008151

PATIENT
  Age: 68 Year
  Sex: Female
  Weight: 57 kg

DRUGS (16)
  1. ERLOTINIB TABLET [Suspect]
     Indication: NON-SMALL CELL LUNG CANCER STAGE I
     Dosage: 150 mg, UID/QD
     Route: 048
     Dates: start: 20120629, end: 20120731
  2. ANALPRAM-HC [Concomitant]
     Indication: PRODUCT USED FOR UNKNOWN INDICATION
     Dosage: 2.5 %, prn
     Route: 054
     Dates: start: 20111020
  3. DILTIAZEM HCL [Concomitant]
     Indication: PRODUCT USED FOR UNKNOWN INDICATION
     Dosage: 180 mg, bid
     Route: 048
     Dates: start: 20111007
  4. FUROSEMIDE [Concomitant]
     Indication: PRODUCT USED FOR UNKNOWN INDICATION
     Dosage: 20 mg, UID/QD
     Route: 048
     Dates: start: 20120905
  5. GABAPENTIN [Concomitant]
     Indication: PRODUCT USED FOR UNKNOWN INDICATION
     Dosage: 2 DF, tid
     Route: 048
     Dates: start: 20120521
  6. HYDROCODONE/ACETAMINOPHEN          /00607101/ [Concomitant]
     Indication: PRODUCT USED FOR UNKNOWN INDICATION
     Dosage: 5-500 mg, Q8hres, prn
     Route: 048
     Dates: start: 20120419
  7. MULTI-VIT [Concomitant]
     Indication: PRODUCT USED FOR UNKNOWN INDICATION
     Dosage: 1 DF, UID/QD
     Route: 048
     Dates: start: 20080626
  8. NEXIUM                             /01479302/ [Concomitant]
     Indication: PRODUCT USED FOR UNKNOWN INDICATION
     Dosage: 40 mg, UID/QD
     Route: 048
     Dates: start: 20110110
  9. OXYCONTIN [Concomitant]
     Indication: PRODUCT USED FOR UNKNOWN INDICATION
     Dosage: 10 mg, Q12 hours
     Route: 048
     Dates: start: 20120806
  10. PROCTOZONE-HC [Concomitant]
     Indication: PRODUCT USED FOR UNKNOWN INDICATION
     Dosage: 2.5 %, QHS
     Route: 054
     Dates: start: 20120611
  11. PROMETHAZINE HCL [Concomitant]
     Indication: NAUSEA
     Dosage: 25 mg, 1/2-1 tablet, Q6 hours, prn
     Route: 048
     Dates: start: 20110103
  12. PROVENTIL HFA                      /00139501/ [Concomitant]
     Indication: PRODUCT USED FOR UNKNOWN INDICATION
     Dosage: 2 DF, qid
     Route: 055
     Dates: start: 20120201
  13. SYNTHROID [Concomitant]
     Indication: PRODUCT USED FOR UNKNOWN INDICATION
     Dosage: 100 ug, UID/QD
     Route: 048
     Dates: start: 20080619
  14. TRAMADOL HCL [Concomitant]
     Indication: PRODUCT USED FOR UNKNOWN INDICATION
     Dosage: 50 mg, Q12 hours, prn
     Route: 048
     Dates: start: 20110309
  15. ZOLPIDEM TARTRATE [Concomitant]
     Indication: PRODUCT USED FOR UNKNOWN INDICATION
     Dosage: 10 mg, QHS
     Route: 048
     Dates: start: 20110203
  16. XGEVA [Concomitant]
     Indication: METASTASES TO BONE
     Dosage: 1 DF, Monthly
     Route: 058
     Dates: start: 20120319

REACTIONS (5)
  - Metastases to central nervous system [Unknown]
  - Pyrexia [Recovered/Resolved]
  - Chills [Unknown]
  - Muscular weakness [Unknown]
  - Malignant neoplasm progression [Fatal]
